FAERS Safety Report 17313294 (Version 1)
Quarter: 2020Q1

REPORT INFORMATION
  Report Type: Spontaneous
  Country: US (occurrence: US)
  Receive Date: 20200107
  Receipt Date: 20200107
  Transmission Date: 20200409
  Serious: No
  Sender: FDA-Public Use
  Company Number: None

PATIENT
  Age: 79 Year
  Sex: Female

DRUGS (1)
  1. PIQRAY [Suspect]
     Active Substance: ALPELISIB
     Route: 048
     Dates: start: 20191025

REACTIONS (5)
  - Abdominal pain upper [None]
  - Decreased appetite [None]
  - Fatigue [None]
  - Blood glucose increased [None]
  - Dizziness [None]

NARRATIVE: CASE EVENT DATE: 20200107
